FAERS Safety Report 12963881 (Version 1)
Quarter: 2016Q4

REPORT INFORMATION
  Report Type: Spontaneous
  Country: FR (occurrence: FR)
  Receive Date: 20161122
  Receipt Date: 20161122
  Transmission Date: 20170207
  Serious: Yes (Death, Hospitalization, Other)
  Sender: FDA-Public Use
  Company Number: FR-GLAXOSMITHKLINE-FR2016GSK170556

PATIENT
  Age: 61 Year
  Sex: Male
  Weight: 110 kg

DRUGS (13)
  1. LAMISIL [Suspect]
     Active Substance: TERBINAFINE HYDROCHLORIDE
     Indication: FUNGAL INFECTION
     Dosage: UNK
     Route: 065
     Dates: start: 20141215, end: 20141231
  2. AMYCOR [Concomitant]
     Active Substance: BIFONAZOLE
     Dosage: UNK
     Dates: start: 20141215
  3. PERINDOPRIL [Concomitant]
     Active Substance: PERINDOPRIL
     Dosage: 4 MG, UNK
  4. GRISEFULINE [Concomitant]
     Active Substance: GRISEOFULVIN
     Dosage: UNK
     Dates: end: 20150102
  5. PAROXETINE. [Concomitant]
     Active Substance: PAROXETINE
     Dosage: 20 MG, UNK
  6. PRAVADUAL [Concomitant]
     Active Substance: ASPIRIN\PRAVASTATIN
  7. CARDENSIEL [Concomitant]
     Active Substance: BISOPROLOL FUMARATE
  8. MYCOSTER [Concomitant]
     Active Substance: CICLOPIROX\CICLOPIROX OLAMINE
     Dosage: UNK
     Dates: start: 20141231
  9. ESOMEPRAZOLE [Concomitant]
     Active Substance: ESOMEPRAZOLE
     Dosage: 20 MG, UNK
  10. RISPERDAL [Concomitant]
     Active Substance: RISPERIDONE
  11. ATARAX [Concomitant]
     Active Substance: HYDROXYZINE\HYDROXYZINE HYDROCHLORIDE
  12. CELESTAMINE [Concomitant]
     Active Substance: BETAMETHASONE\DEXCHLORPHENIRAMINE MALEATE
     Dosage: UNK
     Dates: start: 20141231, end: 20150102
  13. ZOPICLONE [Concomitant]
     Active Substance: ZOPICLONE

REACTIONS (6)
  - Drug reaction with eosinophilia and systemic symptoms [Fatal]
  - Skin erosion [Recovering/Resolving]
  - Acute respiratory distress syndrome [Fatal]
  - Body temperature increased [Unknown]
  - Rash maculo-papular [Recovering/Resolving]
  - Rash pustular [Recovering/Resolving]

NARRATIVE: CASE EVENT DATE: 20141229
